FAERS Safety Report 8612044-4 (Version None)
Quarter: 2012Q3

REPORT INFORMATION
  Report Type: 
  Country: None (occurrence: None)
  Receive Date: 20120822
  Receipt Date: 20120815
  Transmission Date: 20120928
  Serious: Yes (Hospitalization)
  Sender: FDA-Public Use
  Company Number: US-CELGENEUS-163-21880-12072888

PATIENT
  Age: 51 Year
  Sex: Female
  Weight: 72 kg

DRUGS (28)
  1. ZOSYN [Concomitant]
     Route: 065
     Dates: start: 20120719
  2. MAGNESIUM OXIDE [Concomitant]
     Indication: SUPPLEMENTATION THERAPY
     Route: 041
     Dates: start: 20120430
  3. TETRAHYDROZOLINE HCL [Concomitant]
     Dosage: 2 UNITS
     Route: 065
     Dates: start: 20120426
  4. TRIAMCINOLONE [Concomitant]
     Indication: RASH
     Dosage: .2 PERCENT
     Route: 065
     Dates: start: 20120401
  5. CIPROFLOXACIN HCL [Concomitant]
     Route: 065
  6. ONDANSETRON [Concomitant]
     Indication: NAUSEA
     Dosage: 8 MILLIGRAM
     Route: 048
     Dates: start: 20111207
  7. PRILOSEC [Concomitant]
     Dosage: 20 MILLIGRAM
     Route: 048
     Dates: start: 20120115
  8. PREDNISONE TAB [Concomitant]
     Dosage: 70 MILLIGRAM
     Route: 048
  9. STEROIDS [Concomitant]
     Indication: GRAFT VERSUS HOST DISEASE IN INTESTINE
     Dosage: 2 MILLIGRAM/KILOGRAM
     Route: 065
  10. TRIMETHOPRIM + SULFAMETHOXAZOLE [Concomitant]
     Dosage: 160-800MG
     Route: 048
     Dates: start: 20120420
  11. ATIVAN [Concomitant]
     Indication: NAUSEA
     Dosage: .5 MILLIGRAM
     Route: 048
     Dates: start: 20120501
  12. SENNA-MINT WAF [Concomitant]
     Indication: CONSTIPATION
     Dosage: 34.4 MILLIGRAM
     Route: 048
     Dates: start: 20120429
  13. CELEXA [Concomitant]
     Indication: DEPRESSION
     Dosage: 30 MILLIGRAM
     Route: 048
     Dates: start: 20120429
  14. VALGANCICLOVIR [Concomitant]
     Route: 065
  15. STEROIDS [Concomitant]
     Dosage: 140 MILLIGRAM
     Route: 048
  16. DOCUSATE [Concomitant]
     Indication: CONSTIPATION
     Dosage: 200 MILLIGRAM
     Route: 048
     Dates: start: 20120429
  17. POSACONAZOLE [Concomitant]
     Indication: PROPHYLAXIS
     Route: 065
  18. MAGNESIUM OXIDE [Concomitant]
     Dosage: 400 MILLIGRAM
     Route: 048
  19. PREDNISONE TAB [Concomitant]
     Dosage: 30 MILLIGRAM
     Route: 048
  20. BUDESONIDE [Concomitant]
     Route: 065
  21. REVLIMID [Suspect]
     Dosage: 5 MILLIGRAM
     Route: 048
     Dates: start: 20120705, end: 20120712
  22. BACTRIM [Concomitant]
     Indication: PROPHYLAXIS
     Route: 065
  23. VALTREX [Concomitant]
     Indication: ANTIVIRAL PROPHYLAXIS
     Dosage: 500 MILLIGRAM
     Route: 048
     Dates: start: 20120201
  24. PROCHLORPERAZINE [Concomitant]
     Indication: NAUSEA
     Dosage: 10 MILLIGRAM
     Route: 048
     Dates: start: 20120212
  25. OXYCODONE HCL [Concomitant]
     Indication: PAIN
     Dosage: 5 MILLIGRAM
     Route: 048
     Dates: start: 20111202
  26. FLUCONAZOLE [Concomitant]
     Indication: ANTIFUNGAL PROPHYLAXIS
     Dosage: 400 MILLIGRAM
     Route: 048
     Dates: start: 20111212, end: 20120712
  27. VALCYTE [Concomitant]
     Route: 065
  28. FLAGYL [Concomitant]
     Route: 065

REACTIONS (10)
  - NEUTROPHIL COUNT DECREASED [None]
  - PYREXIA [None]
  - ALANINE AMINOTRANSFERASE INCREASED [None]
  - ASPARTATE AMINOTRANSFERASE INCREASED [None]
  - DIARRHOEA [None]
  - VOMITING [None]
  - GRAFT VERSUS HOST DISEASE [None]
  - BLOOD ALKALINE PHOSPHATASE INCREASED [None]
  - ABDOMINAL PAIN [None]
  - NAUSEA [None]
